FAERS Safety Report 8595778 (Version 3)
Quarter: 2014Q2

REPORT INFORMATION
  Report Type: Spontaneous
  Country: US (occurrence: US)
  Receive Date: 20120605
  Receipt Date: 20140414
  Transmission Date: 20141212
  Serious: Yes (Other)
  Sender: FDA-Public Use
  Company Number: US-ASTRAZENECA-2012SE35499

PATIENT
  Age: 51 Year
  Sex: Male

DRUGS (13)
  1. NEXIUM [Suspect]
     Indication: GASTROOESOPHAGEAL REFLUX DISEASE
     Route: 048
     Dates: start: 2002
  2. NEXIUM [Suspect]
     Indication: GASTROOESOPHAGEAL REFLUX DISEASE
     Route: 048
     Dates: start: 20090928
  3. PRILOSEC [Suspect]
     Indication: GASTROOESOPHAGEAL REFLUX DISEASE
     Route: 048
     Dates: start: 1990, end: 2002
  4. ZANTAC [Concomitant]
     Indication: GASTROOESOPHAGEAL REFLUX DISEASE
     Dates: start: 2011
  5. ALKA SELTZER [Concomitant]
  6. MYLANTA [Concomitant]
  7. TESTIM [Concomitant]
  8. PAXIL [Concomitant]
     Indication: DEPRESSION
  9. MIRTAZAPINE [Concomitant]
     Indication: DEPRESSION
  10. CALCIUM CITRATE [Concomitant]
     Indication: OSTEOPOROSIS
  11. D 3 [Concomitant]
  12. FISH OIL [Concomitant]
  13. BABY ASPIRIN [Concomitant]

REACTIONS (7)
  - Spinal compression fracture [Unknown]
  - Osteoporosis [Unknown]
  - Bone density decreased [Unknown]
  - Androgen deficiency [Unknown]
  - Bone disorder [Unknown]
  - Osteopenia [Unknown]
  - Depression [Unknown]
